FAERS Safety Report 10628249 (Version 1)
Quarter: 2014Q4

REPORT INFORMATION
  Report Type: Spontaneous
  Country: US (occurrence: US)
  Receive Date: 20141205
  Receipt Date: 20141205
  Transmission Date: 20150529
  Serious: No
  Sender: FDA-Public Use
  Company Number: US-BRISTOL-MYERS SQUIBB COMPANY-21429568

PATIENT
  Age: 78 Year
  Sex: Female

DRUGS (4)
  1. LIPITOR [Concomitant]
     Active Substance: ATORVASTATIN CALCIUM
  2. COUMADIN [Suspect]
     Active Substance: WARFARIN SODIUM
     Dosage: 5MG
  3. DIOVAN [Concomitant]
     Active Substance: VALSARTAN
  4. METFORMIN [Concomitant]
     Active Substance: METFORMIN HYDROCHLORIDE

REACTIONS (3)
  - Dizziness [Unknown]
  - Heart rate increased [Unknown]
  - Tinnitus [Unknown]
